FAERS Safety Report 6155736-1 (Version None)
Quarter: 2009Q2

REPORT INFORMATION
  Report Type: 
  Country: None (occurrence: None)
  Receive Date: 20090415
  Receipt Date: 20090406
  Transmission Date: 20091009
  Serious: Yes (Death)
  Sender: FDA-Public Use
  Company Number: B0569851A

PATIENT
  Age: 36 Month
  Sex: Male

DRUGS (6)
  1. ACYCLOVIR [Suspect]
  2. CEFTRIAXONE [Concomitant]
  3. PHENYTOIN [Concomitant]
  4. PHENOBARBITAL [Concomitant]
  5. CARBAMAZEPINE [Concomitant]
  6. ANTI-EPILEPTIC DRUGS [Concomitant]

REACTIONS (11)
  - ALTERED STATE OF CONSCIOUSNESS [None]
  - CHOREOATHETOSIS [None]
  - CONVULSION [None]
  - DRUG INEFFECTIVE [None]
  - ENCEPHALITIS HERPES [None]
  - MOTOR DYSFUNCTION [None]
  - NUCLEAR MAGNETIC RESONANCE IMAGING ABNORMAL [None]
  - PARTIAL SEIZURES [None]
  - PYREXIA [None]
  - RESPIRATORY FAILURE [None]
  - SPEECH DISORDER [None]
